FAERS Safety Report 15651202 (Version 1)
Quarter: 2018Q4

REPORT INFORMATION
  Report Type: Spontaneous
  Country: US (occurrence: US)
  Receive Date: 20181123
  Receipt Date: 20181123
  Transmission Date: 20190205
  Serious: No
  Sender: FDA-Public Use
  Company Number: US-009507513-1811USA008703

PATIENT
  Age: 45 Year
  Sex: Female
  Weight: 55 kg

DRUGS (1)
  1. NEXPLANON [Suspect]
     Active Substance: ETONOGESTREL
     Indication: CONTRACEPTION
     Dosage: 1 IMPLANT, 3 YEARS, LEFT ARM
     Route: 059
     Dates: start: 20150908

REACTIONS (3)
  - Incorrect product administration duration [Unknown]
  - Blood glucose increased [Not Recovered/Not Resolved]
  - Expired product administered [Unknown]

NARRATIVE: CASE EVENT DATE: 20180908
